FAERS Safety Report 5492158-0 (Version None)
Quarter: 2007Q4

REPORT INFORMATION
  Report Type: 
  Country: None (occurrence: None)
  Receive Date: 20071018
  Receipt Date: 20071011
  Transmission Date: 20080405
  Serious: Yes (Other)
  Sender: FDA-Public Use
  Company Number: S07-USA-05453-01

PATIENT
  Age: 76 Year
  Sex: Female

DRUGS (6)
  1. THYROID TAB [Suspect]
     Indication: HYPOTHYROIDISM
     Dosage: 60 MG QD PO
     Route: 048
     Dates: start: 20020101, end: 20070501
  2. THYROID TAB [Suspect]
     Indication: HYPOTHYROIDISM
     Dosage: 45 MG QD PO
     Route: 048
     Dates: start: 20070502, end: 20070601
  3. THYROID TAB [Suspect]
     Indication: HYPOTHYROIDISM
     Dosage: 60 MG QD PO
     Route: 048
     Dates: start: 20070601, end: 20070801
  4. ISOSORBIDE DINITRATE [Concomitant]
  5. NORVASC [Concomitant]
  6. LASIX [Concomitant]

REACTIONS (3)
  - ATRIAL FIBRILLATION [None]
  - THYROID FUNCTION TEST ABNORMAL [None]
  - VENTRICULAR TACHYCARDIA [None]
